FAERS Safety Report 5390528-2 (Version None)
Quarter: 2007Q3

REPORT INFORMATION
  Report Type: 
  Country: None (occurrence: None)
  Receive Date: 20070718
  Receipt Date: 20070319
  Transmission Date: 20080115
  Serious: No
  Sender: FDA-Public Use
  Company Number: US-KINGPHARMUSA00001-K200700318

PATIENT

DRUGS (2)
  1. LEVOXYL [Suspect]
     Route: 048
  2. SYNTHROID [Suspect]

REACTIONS (2)
  - DRUG WITHDRAWAL SYNDROME [None]
  - DRY SKIN [None]
